FAERS Safety Report 8886953 (Version 1)
Quarter: 2012Q4

REPORT INFORMATION
  Report Type: 
  Country: US (occurrence: US)
  Receive Date: 20121105
  Receipt Date: 20121105
  Transmission Date: 20130627
  Serious: No
  Sender: FDA-Public Use
  Company Number: US-PFIZER INC-2012271784

PATIENT
  Sex: Female

DRUGS (3)
  1. CHANTIX [Suspect]
     Dosage: UNK
     Dates: start: 200712, end: 200801
  2. CHANTIX [Suspect]
     Dosage: UNK
     Dates: start: 2009, end: 2009
  3. CHANTIX [Suspect]
     Dosage: UNK
     Dates: start: 2012, end: 201210

REACTIONS (4)
  - Headache [Not Recovered/Not Resolved]
  - Nausea [Recovered/Resolved]
  - Abnormal dreams [Not Recovered/Not Resolved]
  - Alopecia [Not Recovered/Not Resolved]
